FAERS Safety Report 9724760 (Version 1)
Quarter: 2013Q4

REPORT INFORMATION
  Report Type: Report from Study
  Country: US (occurrence: US)
  Receive Date: 20131202
  Receipt Date: 20131202
  Transmission Date: 20140711
  Serious: Yes (Hospitalization, Other)
  Sender: FDA-Public Use
  Company Number: US-TEVA-447363USA

PATIENT
  Age: 38 Year
  Sex: Male
  Weight: 79.7 kg

DRUGS (41)
  1. DOXORUBICIN [Suspect]
     Route: 042
  2. VINCRISTINE [Suspect]
     Indication: DIFFUSE LARGE B-CELL LYMPHOMA
     Dosage: .0952 MILLIGRAM DAILY; LAST DOSE PRIOR TO SAE 2 MG ON 16/OCT/2012
     Route: 042
     Dates: start: 20130724
  3. OBINUTUZUMAB [Suspect]
     Indication: DIFFUSE LARGE B-CELL LYMPHOMA
     Dosage: 47.619 MILLIGRAM DAILY; LAST DOSE PRIOR TO SAE 1000 MG ON 16/OCT/2012
     Route: 042
     Dates: start: 20120724
  4. PREDNISONE [Suspect]
     Indication: DIFFUSE LARGE B-CELL LYMPHOMA
     Dosage: 4.7619 MILLIGRAM DAILY; LAST DOSE PRIOR TO SAE 100 MG ON 16/OCT/2012
     Route: 042
     Dates: start: 20120724
  5. CYCLOPHOSPHAMIDE [Suspect]
     Indication: DIFFUSE LARGE B-CELL LYMPHOMA
     Dosage: 71.4286 MILLIGRAM DAILY; LAST DOSE PRIOR TO SAE 100 MG ON 16/OCT/2012
     Route: 042
     Dates: start: 20120724
  6. OXYCODONE [Concomitant]
     Indication: PAIN
     Dates: start: 20121027
  7. ZOLPIDEM [Concomitant]
     Indication: PROPHYLAXIS
  8. ZOLPIDEM [Concomitant]
     Indication: INSOMNIA
  9. AMOXICILLIN [Concomitant]
     Indication: TOOTH ABSCESS
     Dates: start: 20121012, end: 20121018
  10. OXYCONTIN [Concomitant]
     Indication: PAIN
     Dates: start: 20120806
  11. ZOFRAN [Concomitant]
     Indication: PROPHYLAXIS
     Dates: start: 20120726
  12. ZOFRAN [Concomitant]
     Indication: NAUSEA
     Dates: start: 20121016, end: 20121016
  13. PHENERGAN [Concomitant]
     Indication: PROPHYLAXIS
     Dates: start: 20120726
  14. PHENERGAN [Concomitant]
     Indication: HYPERSENSITIVITY
  15. TRAMADOL [Concomitant]
     Indication: PAIN
     Dates: start: 20120726
  16. BENADRYL [Concomitant]
     Indication: PREMEDICATION
     Dates: start: 20121016, end: 20121016
  17. TYLENOL [Concomitant]
     Indication: PREMEDICATION
     Dates: start: 20121016, end: 20121016
  18. ALLOPURINOL [Concomitant]
     Indication: PROPHYLAXIS
     Dates: start: 20121028, end: 20121029
  19. LOPERAMIDE [Concomitant]
     Indication: DIARRHOEA
     Dates: start: 20121029, end: 20121029
  20. LOPERAMIDE [Concomitant]
     Dates: start: 20121030, end: 20121030
  21. MAGNESIUM SULFATE [Concomitant]
     Indication: TACHYCARDIA
     Dates: start: 20121028, end: 20121028
  22. SODIUM PHOSPHATE [Concomitant]
     Indication: HYPOPHOSPHATAEMIA
     Dates: start: 20121028, end: 20121028
  23. SODIUM PHOSPHATE [Concomitant]
     Dates: start: 20121031, end: 20121031
  24. OXYCONTIN [Concomitant]
     Indication: ODYNOPHAGIA
     Dates: start: 20121027, end: 20121113
  25. LOVENOX [Concomitant]
     Indication: ANTICOAGULANT THERAPY
     Dates: start: 20121101, end: 20121113
  26. POTASSIUM CHLORIDE [Concomitant]
     Indication: HYPOKALAEMIA
     Dates: start: 20121030, end: 20121031
  27. POTASSIUM CHLORIDE [Concomitant]
     Indication: DEHYDRATION
     Dates: start: 20121103, end: 20121103
  28. POTASSIUM CHLORIDE [Concomitant]
     Dates: start: 20121106, end: 20121106
  29. POTASSIUM CHLORIDE [Concomitant]
     Dates: start: 20121027, end: 20121028
  30. ACYCLOVIR [Concomitant]
     Indication: VIRAL INFECTION
     Dates: start: 20121102, end: 20121105
  31. ACYCLOVIR [Concomitant]
     Dates: start: 20121105, end: 20121113
  32. LIDOCAINE VISCOUS [Concomitant]
     Indication: MOUTH ULCERATION
     Dates: start: 20121102, end: 20121102
  33. LIDOCAINE VISCOUS [Concomitant]
     Dates: start: 20121105, end: 20121105
  34. MORPHINE [Concomitant]
     Indication: MOUTH ULCERATION
     Dates: start: 20121106, end: 20121113
  35. POLYETHYLENE GLYCOL [Concomitant]
     Indication: CONSTIPATION
     Route: 048
     Dates: start: 20121105, end: 20121113
  36. FLUCONAZOLE [Concomitant]
     Indication: FUNGAL INFECTION
     Route: 048
     Dates: start: 20121105, end: 20121113
  37. SODIUM CHLORIDE [Concomitant]
     Indication: RENAL FAILURE ACUTE
     Route: 048
     Dates: start: 20121108, end: 20121113
  38. AZITHROMYCIN [Concomitant]
     Indication: NASOPHARYNGITIS
     Dates: start: 20121116, end: 20121116
  39. AZITHROMYCIN [Concomitant]
     Dates: start: 20121117, end: 20121121
  40. AZITHROMYCIN [Concomitant]
     Indication: NASOPHARYNGITIS
     Dates: start: 20121117, end: 20121121
  41. ONDANSETRON [Concomitant]
     Indication: NAUSEA
     Dates: start: 20121102, end: 20121102

REACTIONS (2)
  - Catheter site cellulitis [Recovered/Resolved]
  - Febrile neutropenia [Recovered/Resolved]
